FAERS Safety Report 19998860 (Version 1)
Quarter: 2021Q4

REPORT INFORMATION
  Report Type: Spontaneous
  Country: FR (occurrence: FR)
  Receive Date: 20211027
  Receipt Date: 20211027
  Transmission Date: 20220303
  Serious: Yes (Other)
  Sender: FDA-Public Use
  Company Number: FR-ORACLE-2009AL006989

PATIENT
  Age: 37 Year
  Sex: Female

DRUGS (1)
  1. GABAPENTIN [Suspect]
     Active Substance: GABAPENTIN
     Indication: Epilepsy
     Dosage: 1800 MG, ONCE A DAY
     Route: 065
     Dates: end: 200906

REACTIONS (2)
  - Visual field defect [Unknown]
  - Tunnel vision [Unknown]

NARRATIVE: CASE EVENT DATE: 20090101
